FAERS Safety Report 6187994-1 (Version None)
Quarter: 2009Q2

REPORT INFORMATION
  Report Type: 
  Country: None (occurrence: None)
  Receive Date: 20090511
  Receipt Date: 20090511
  Transmission Date: 20091009
  Serious: Yes (Other)
  Sender: FDA-Public Use
  Company Number: None

PATIENT
  Sex: Female
  Weight: 77.1115 kg

DRUGS (2)
  1. WELLBUTRIN XL [Suspect]
     Indication: BIPOLAR I DISORDER
     Dosage: 300MG + 150MG 1X A DAY PO
     Route: 048
     Dates: start: 20050101, end: 20090507
  2. LAMICTAL [Suspect]
     Indication: BIPOLAR I DISORDER
     Dosage: 100MG 1 X A DAY PO
     Route: 048
     Dates: start: 20090101, end: 20090507

REACTIONS (2)
  - PRODUCT SUBSTITUTION ISSUE [None]
  - THERAPEUTIC RESPONSE UNEXPECTED [None]
